FAERS Safety Report 24576918 (Version 2)
Quarter: 2024Q4

REPORT INFORMATION
  Report Type: Spontaneous
  Country: CA (occurrence: CA)
  Receive Date: 20241104
  Receipt Date: 20241213
  Transmission Date: 20250115
  Serious: Yes (Life-Threatening, Disabling)
  Sender: GLAXOSMITHKLINE
  Company Number: CA-GSK-CA2024AMR136343

PATIENT

DRUGS (1)
  1. FLUTICASONE PROPIONATE\SALMETEROL XINAFOATE [Suspect]
     Active Substance: FLUTICASONE PROPIONATE\SALMETEROL XINAFOATE
     Indication: Asthma
     Dosage: UNK 500 INHALATION BID
     Route: 055

REACTIONS (3)
  - Asthma [Not Recovered/Not Resolved]
  - Lung disorder [Unknown]
  - Product complaint [Unknown]

NARRATIVE: CASE EVENT DATE: 20220201
